FAERS Safety Report 6731675-X (Version None)
Quarter: 2010Q2

REPORT INFORMATION
  Report Type: 
  Country: None (occurrence: None)
  Receive Date: 20100519
  Receipt Date: 20100506
  Transmission Date: 20101027
  Serious: Yes (Death, Hospitalization, Other)
  Sender: FDA-Public Use
  Company Number: US-JNJFOC-20071202395

PATIENT
  Sex: Male
  Weight: 81.19 kg

DRUGS (15)
  1. REMICADE [Suspect]
     Indication: CROHN'S DISEASE
     Dosage: STARTED IN OCT OR NOV-2005
     Route: 042
  2. REMICADE [Suspect]
     Dosage: ONCE EVERY 6 TO 7 WEEKS
     Route: 042
  3. MERCAPTOPURINE [Suspect]
     Indication: CROHN'S DISEASE
     Route: 048
  4. MERCAPTOPURINE [Suspect]
     Route: 048
  5. MERCAPTOPURINE [Suspect]
     Route: 048
  6. ALLOPURINOL [Concomitant]
  7. WELLBUTRIN [Concomitant]
  8. BENTYL [Concomitant]
  9. DOXYCYCLINE [Concomitant]
  10. CLARITIN [Concomitant]
  11. MESALAMINE [Concomitant]
  12. PROTONIX [Concomitant]
  13. ZOLOFT [Concomitant]
  14. AMBIEN [Concomitant]
  15. STEROIDS NOS [Concomitant]

REACTIONS (5)
  - COLLAPSE OF LUNG [None]
  - HEPATOSPLENIC T-CELL LYMPHOMA [None]
  - MECHANICAL VENTILATION [None]
  - RENAL FAILURE [None]
  - SINUS DISORDER [None]
